FAERS Safety Report 6013101-1 (Version None)
Quarter: 2008Q4

REPORT INFORMATION
  Report Type: 
  Country: None (occurrence: None)
  Receive Date: 20081219
  Receipt Date: 20081208
  Transmission Date: 20090506
  Serious: Yes (Hospitalization)
  Sender: FDA-Public Use
  Company Number: US-BIOGENIDEC-2008BI021978

PATIENT
  Sex: Female
  Weight: 74 kg

DRUGS (8)
  1. AVONEX [Suspect]
     Indication: MULTIPLE SCLEROSIS
     Route: 030
     Dates: start: 20041201
  2. AVONEX [Suspect]
     Route: 030
     Dates: start: 19970701, end: 20030801
  3. AVONEX [Suspect]
     Route: 030
     Dates: start: 20030801, end: 20041101
  4. DARVOCET [Concomitant]
     Indication: DRUG USE FOR UNKNOWN INDICATION
  5. NOVANTRONE [Concomitant]
     Indication: MULTIPLE SCLEROSIS
     Dates: start: 20060601
  6. AVALIDE [Concomitant]
     Indication: HYPERTENSION
     Dates: start: 20030101
  7. ALBUTEROL [Concomitant]
     Indication: ASTHMA
     Dates: start: 20030101
  8. LEVOXYL [Concomitant]
     Indication: AUTOIMMUNE THYROIDITIS

REACTIONS (3)
  - CHEST PAIN [None]
  - PERIPHERAL ARTERIAL OCCLUSIVE DISEASE [None]
  - VENTRICULAR DYSFUNCTION [None]
